FAERS Safety Report 8614227-6 (Version None)
Quarter: 2012Q3

REPORT INFORMATION
  Report Type: 
  Country: None (occurrence: None)
  Receive Date: 20120823
  Receipt Date: 20120821
  Transmission Date: 20120928
  Serious: No
  Sender: FDA-Public Use
  Company Number: US-PFIZER INC-2012206103

PATIENT
  Age: 36 Year
  Sex: Female

DRUGS (5)
  1. EFFEXOR XR [Suspect]
     Indication: ANXIETY
     Dosage: UNK
     Dates: start: 20030201
  2. EFFEXOR XR [Suspect]
     Dosage: 37.5 MG, DAILY
     Dates: end: 20120801
  3. CYMBALTA [Suspect]
     Indication: DEPRESSION
  4. CYMBALTA [Suspect]
     Indication: ANXIETY
     Dosage: 60 MG, DAILY
  5. EFFEXOR XR [Suspect]
     Indication: DEPRESSION
     Dosage: 300 MG, DAILY

REACTIONS (5)
  - WITHDRAWAL SYNDROME [None]
  - FEELING ABNORMAL [None]
  - HEADACHE [None]
  - DIZZINESS [None]
  - NAUSEA [None]
